FAERS Safety Report 6687265-0 (Version None)
Quarter: 2010Q2

REPORT INFORMATION
  Report Type: 
  Country: None (occurrence: None)
  Receive Date: 20100419
  Receipt Date: 20100407
  Transmission Date: 20101027
  Serious: Yes (Hospitalization)
  Sender: FDA-Public Use
  Company Number: JP-AMGEN-US383057

PATIENT
  Age: 55 Year

DRUGS (5)
  1. ENBREL [Suspect]
     Indication: RHEUMATOID ARTHRITIS
     Dosage: UNSPECIFIED
     Route: 058
     Dates: start: 20090501, end: 20090801
  2. PREDNISOLONE [Concomitant]
     Route: 048
  3. MUCOSTA [Concomitant]
     Dosage: 200 MG, FREQUENCY UNSPECIFIED
     Route: 048
  4. RHEUMATREX [Concomitant]
     Route: 048
  5. CELECOXIB [Concomitant]
     Dosage: 200 MG, FREQUENCY UNSPECIFIED
     Route: 048

REACTIONS (1)
  - PNEUMOCYSTIS JIROVECI PNEUMONIA [None]
